FAERS Safety Report 6139255-4 (Version None)
Quarter: 2009Q2

REPORT INFORMATION
  Report Type: 
  Country: None (occurrence: None)
  Receive Date: 20090401
  Receipt Date: 20090324
  Transmission Date: 20091009
  Serious: Yes (Other)
  Sender: FDA-Public Use
  Company Number: US-BIOGENIDEC-2009BI009432

PATIENT
  Age: 48 Year
  Sex: Female
  Weight: 96 kg

DRUGS (1)
  1. AVONEX [Suspect]
     Indication: MULTIPLE SCLEROSIS
     Route: 030
     Dates: start: 19960101, end: 20010101

REACTIONS (4)
  - BALANCE DISORDER [None]
  - FALL [None]
  - MUSCULAR WEAKNESS [None]
  - PYREXIA [None]
